FAERS Safety Report 5806000-9 (Version None)
Quarter: 2008Q3

REPORT INFORMATION
  Report Type: 
  Country: None (occurrence: None)
  Receive Date: 20080710
  Receipt Date: 20080707
  Transmission Date: 20090109
  Serious: Yes (Death)
  Sender: FDA-Public Use
  Company Number: B0528014A

PATIENT
  Age: 87 Year
  Sex: Male

DRUGS (11)
  1. ARIXTRA [Suspect]
     Indication: THROMBOSIS PROPHYLAXIS
     Dosage: 1.5MG PER DAY
     Route: 058
     Dates: start: 20080417, end: 20080418
  2. THEO-DUR [Concomitant]
     Dosage: 100MG TWICE PER DAY
     Route: 048
  3. BLOPRESS [Concomitant]
     Dosage: 8MG PER DAY
     Route: 048
  4. LANDEL [Concomitant]
     Dosage: 40MG PER DAY
     Route: 048
  5. LENDORMIN [Concomitant]
     Dosage: 1 PER DAY
     Route: 048
  6. UNSPECIFIED DRUG [Concomitant]
     Route: 031
  7. KARY UNI [Concomitant]
     Route: 031
  8. UNKNOWN DRUG [Concomitant]
     Route: 048
  9. BAYCARON [Concomitant]
     Dosage: 1 PER DAY
     Route: 048
  10. GASTER [Concomitant]
     Dosage: 20MG PER DAY
     Route: 048
  11. QVAR 40 [Concomitant]
     Dosage: 2 PER DAY
     Route: 055

REACTIONS (9)
  - DISSEMINATED INTRAVASCULAR COAGULATION [None]
  - GASTROINTESTINAL NECROSIS [None]
  - HAEMATEMESIS [None]
  - HEPATIC FAILURE [None]
  - MULTI-ORGAN FAILURE [None]
  - RENAL FAILURE ACUTE [None]
  - SHOCK [None]
  - SHOCK HAEMORRHAGIC [None]
  - UPPER GASTROINTESTINAL HAEMORRHAGE [None]
